FAERS Safety Report 9721980 (Version 1)
Quarter: 2013Q4

REPORT INFORMATION
  Report Type: Other
  Country: US (occurrence: US)
  Receive Date: 20131202
  Receipt Date: 20131202
  Transmission Date: 20140711
  Serious: Yes (Other)
  Sender: FDA-Public Use
  Company Number: US-BRISTOL-MYERS SQUIBB COMPANY-19866870

PATIENT
  Age: 76 Year
  Sex: Male

DRUGS (5)
  1. METFORMIN HCL [Suspect]
  2. GLIMEPIRIDE [Suspect]
  3. SIMVASTATIN [Suspect]
  4. RAMIPRIL [Suspect]
  5. NEBIVOLOL [Suspect]

REACTIONS (2)
  - Hodgkin^s disease [Unknown]
  - Cerebral infarction [Unknown]
